FAERS Safety Report 6037558-5 (Version None)
Quarter: 2009Q1

REPORT INFORMATION
  Report Type: 
  Country: None (occurrence: None)
  Receive Date: 20090113
  Receipt Date: 20081230
  Transmission Date: 20090719
  Serious: Yes (Hospitalization, Other)
  Sender: FDA-Public Use
  Company Number: CHPA2008US23702

PATIENT
  Age: 70 Year
  Sex: Male
  Weight: 77.1 kg

DRUGS (3)
  1. EXCEDRIN (MIGRAINE) [Suspect]
     Indication: TENSION HEADACHE
     Dosage: 2 DF, QD, ORAL
     Route: 048
     Dates: end: 20090101
  2. UROXATRAL [Concomitant]
  3. LIPITOR [Concomitant]

REACTIONS (5)
  - BLOOD CHOLESTEROL INCREASED [None]
  - BLOOD CREATINE PHOSPHOKINASE INCREASED [None]
  - HEART VALVE REPLACEMENT [None]
  - PROSTATOMEGALY [None]
  - PRURITUS GENERALISED [None]
